FAERS Safety Report 21154971 (Version 1)
Quarter: 2022Q3

REPORT INFORMATION
  Report Type: Spontaneous
  Country: US (occurrence: None)
  Receive Date: 20220729
  Receipt Date: 20220729
  Transmission Date: 20221027
  Serious: No
  Sender: FDA-Public Use
  Company Number: None

PATIENT
  Sex: Male

DRUGS (2)
  1. BENEFIX [Suspect]
     Active Substance: COAGULATION FACTOR IX RECOMBINANT HUMAN\ISOPROPYL ALCOHOL
     Indication: Acquired factor IX deficiency
     Dosage: FREQUENCY : DAILY;?ROUTE: SLOW IV PUSH
     Route: 042
     Dates: start: 20170327
  2. BENEFIX [Suspect]
     Active Substance: COAGULATION FACTOR IX RECOMBINANT HUMAN\ISOPROPYL ALCOHOL
     Indication: Acquired factor IX deficiency
     Dosage: FREQUENCY : DAILY;?
     Route: 042
     Dates: start: 20170327

REACTIONS (1)
  - Hepatic haemorrhage [None]
